FAERS Safety Report 8360653-2 (Version None)
Quarter: 2012Q2

REPORT INFORMATION
  Report Type: 
  Country: None (occurrence: None)
  Receive Date: 20120514
  Receipt Date: 20120514
  Transmission Date: 20120825
  Serious: No
  Sender: FDA-Public Use
  Company Number: None

PATIENT
  Age: 67 Year
  Sex: Male

DRUGS (8)
  1. LISINOPRIL [Concomitant]
  2. VARDENAFIL HYDROCHLORIDE (LEVITRA) [Concomitant]
  3. ASPIRIN [Concomitant]
  4. REVLIMID [Suspect]
     Indication: MULTIPLE MYELOMA
     Dosage: REVLIMID 25 MG DAILY X21D/28D ORALLY
     Route: 048
     Dates: start: 20120401
  5. LORATADINE [Concomitant]
  6. METRONIDAZOLE [Concomitant]
  7. COLCHICINE [Concomitant]
  8. TRIAMCINOLONE [Concomitant]

REACTIONS (11)
  - DYSPHONIA [None]
  - SWOLLEN TONGUE [None]
  - DRY MOUTH [None]
  - SKIN WARM [None]
  - CONSTIPATION [None]
  - MUSCLE SPASMS [None]
  - ARTHRALGIA [None]
  - HYPOAESTHESIA [None]
  - FATIGUE [None]
  - HYPERHIDROSIS [None]
  - HEADACHE [None]
